FAERS Safety Report 10220382 (Version 2)
Quarter: 2014Q3

REPORT INFORMATION
  Report Type: Report from Study
  Country: US (occurrence: US)
  Receive Date: 20140606
  Receipt Date: 20140905
  Transmission Date: 20150326
  Serious: Yes (Hospitalization)
  Sender: FDA-Public Use
  Company Number: US-BIOGENIDEC-2014BI052982

PATIENT
  Age: 37 Year
  Sex: Female

DRUGS (1)
  1. TYSABRI [Suspect]
     Active Substance: NATALIZUMAB
     Indication: MULTIPLE SCLEROSIS
     Route: 042
     Dates: start: 20131028

REACTIONS (4)
  - Abscess limb [Unknown]
  - Impaired healing [Recovered/Resolved]
  - Arthritis bacterial [Unknown]
  - Infection [Unknown]

NARRATIVE: CASE EVENT DATE: 2013
